FAERS Safety Report 19858606 (Version 2)
Quarter: 2021Q3

REPORT INFORMATION
  Report Type: Spontaneous
  Country: FR (occurrence: FR)
  Receive Date: 20210920
  Receipt Date: 20210922
  Transmission Date: 20211014
  Serious: Yes (Hospitalization)
  Sender: FDA-Public Use
  Company Number: FR-MYLANLABS-2021M1062966

PATIENT
  Age: 53 Year
  Sex: Female

DRUGS (4)
  1. COCAINE [Suspect]
     Active Substance: COCAINE
     Indication: DRUG ABUSE
     Dosage: 5G/JOUR
     Route: 055
     Dates: start: 1986
  2. CANNABIS [Suspect]
     Active Substance: CANNABIS SATIVA SUBSP. INDICA TOP
     Indication: DRUG ABUSE
     Dosage: UNK, TO 15 JOINTS /DAY
     Dates: start: 1981
  3. LYSANXIA [Suspect]
     Active Substance: PRAZEPAM
     Indication: DRUG ABUSE
     Dosage: UNK
     Route: 048
     Dates: start: 202101
  4. QUETIAPINE. [Suspect]
     Active Substance: QUETIAPINE
     Indication: DRUG ABUSE
     Dosage: 2400 MILLIGRAM, QD
     Route: 048
     Dates: start: 202103

REACTIONS (4)
  - Altered state of consciousness [Not Recovered/Not Resolved]
  - Withdrawal syndrome [Not Recovered/Not Resolved]
  - Drug abuse [Not Recovered/Not Resolved]
  - Balance disorder [Not Recovered/Not Resolved]

NARRATIVE: CASE EVENT DATE: 1981
